FAERS Safety Report 13336787 (Version 1)
Quarter: 2017Q1

REPORT INFORMATION
  Report Type: Spontaneous
  Country: US (occurrence: US)
  Receive Date: 20170315
  Receipt Date: 20170315
  Transmission Date: 20170428
  Serious: No
  Sender: FDA-Public Use
  Company Number: US-PFIZER INC-2017100231

PATIENT
  Age: 3 Year
  Sex: Female
  Weight: 10 kg

DRUGS (4)
  1. GENOTROPIN [Suspect]
     Active Substance: SOMATROPIN
     Indication: GROWTH HORMONE DEFICIENCY
     Dosage: 0.9 MG, UNK (6 DAYS PER WEEK)
     Route: 058
  2. HYLAND^S 4 KIDS COLD^N COUGH [Concomitant]
     Dosage: UNK
  3. BENADRYL [Concomitant]
     Active Substance: DIPHENHYDRAMINE HYDROCHLORIDE
     Dosage: UNK
  4. IVY DRY [Concomitant]
     Active Substance: BENZYL ALCOHOL\CAMPHOR (SYNTHETIC)\MENTHOL
     Dosage: UNK

REACTIONS (5)
  - Nasopharyngitis [Unknown]
  - Nasal congestion [Unknown]
  - Rhinorrhoea [Unknown]
  - Lacrimation increased [Unknown]
  - Oropharyngeal pain [Unknown]
